FAERS Safety Report 11663141 (Version 1)
Quarter: 2015Q4

REPORT INFORMATION
  Report Type: Spontaneous
  Country: TR (occurrence: TR)
  Receive Date: 20151027
  Receipt Date: 20151027
  Transmission Date: 20160304
  Serious: Yes (Death, Other)
  Sender: FDA-Public Use
  Company Number: TR-CIPLA LTD.-2015TR08050

PATIENT

DRUGS (3)
  1. TOPOTECAN [Suspect]
     Active Substance: TOPOTECAN\TOPOTECAN HYDROCHLORIDE
     Indication: SMALL CELL LUNG CANCER LIMITED STAGE
     Route: 065
  2. CISPLATIN. [Suspect]
     Active Substance: CISPLATIN
     Indication: SMALL CELL LUNG CANCER LIMITED STAGE
     Route: 065
  3. ETOSID [Suspect]
     Active Substance: ETOPOSIDE
     Indication: SMALL CELL LUNG CANCER LIMITED STAGE
     Route: 065

REACTIONS (8)
  - Metastases to liver [Fatal]
  - Metastases to meninges [Fatal]
  - Pancytopenia [Unknown]
  - Metastases to central nervous system [Unknown]
  - Metastases to thyroid [Unknown]
  - Radiation pneumonitis [Unknown]
  - Metastases to pancreas [Fatal]
  - Pulmonary fibrosis [Unknown]
